FAERS Safety Report 10778281 (Version 1)
Quarter: 2015Q1

REPORT INFORMATION
  Report Type: Spontaneous
  Country: US (occurrence: US)
  Receive Date: 20150209
  Receipt Date: 20150209
  Transmission Date: 20150721
  Serious: No
  Sender: FDA-Public Use
  Company Number: US-AMGEN-USASP2014074758

PATIENT
  Age: 72 Year
  Sex: Male

DRUGS (1)
  1. NPLATE [Suspect]
     Active Substance: ROMIPLOSTIM
     Indication: IMMUNE THROMBOCYTOPENIC PURPURA
     Dosage: UNK UNK, Q2MO
     Route: 065

REACTIONS (6)
  - Cheilitis [Unknown]
  - Impaired healing [Unknown]
  - Blister [Unknown]
  - Scab [Unknown]
  - Lip dry [Unknown]
  - Wound [Unknown]
